FAERS Safety Report 7553539-4 (Version None)
Quarter: 2011Q2

REPORT INFORMATION
  Report Type: 
  Country: None (occurrence: None)
  Receive Date: 20110614
  Receipt Date: 20110614
  Transmission Date: 20111010
  Serious: Yes (Life-Threatening)
  Sender: FDA-Public Use
  Company Number: None

PATIENT
  Age: 42 Year
  Sex: Male
  Weight: 97.5234 kg

DRUGS (1)
  1. ASTEPRO [Suspect]
     Indication: NASOPHARYNGITIS
     Dosage: 1 SPRAY 2X PER DAY NASAL
     Route: 045
     Dates: start: 20110609, end: 20110609

REACTIONS (2)
  - LOSS OF CONSCIOUSNESS [None]
  - HEART RATE DECREASED [None]
